FAERS Safety Report 20606040 (Version 1)
Quarter: 2022Q1

REPORT INFORMATION
  Report Type: Spontaneous
  Country: US (occurrence: None)
  Receive Date: 20220316
  Receipt Date: 20220316
  Transmission Date: 20220423
  Serious: No
  Sender: FDA-Public Use
  Company Number: None

PATIENT
  Age: 40 Year
  Sex: Male

DRUGS (1)
  1. TREMFYA [Suspect]
     Active Substance: GUSELKUMAB
     Indication: Psoriasis
     Dosage: 100MG  EVERY 8 WEEKS SQ?
     Route: 058
     Dates: start: 202203

REACTIONS (4)
  - Rash [None]
  - Rash erythematous [None]
  - Stress [None]
  - Rash [None]

NARRATIVE: CASE EVENT DATE: 20220309
